FAERS Safety Report 5358516-X (Version None)
Quarter: 2007Q2

REPORT INFORMATION
  Report Type: 
  Country: None (occurrence: None)
  Receive Date: 20070615
  Receipt Date: 20070606
  Transmission Date: 20071010
  Serious: Yes (Other)
  Sender: FDA-Public Use
  Company Number: CA-JNJFOC-20060902408

PATIENT
  Age: 9 Year
  Sex: Male

DRUGS (4)
  1. REMICADE [Suspect]
     Route: 042
  2. REMICADE [Suspect]
     Route: 042
  3. REMICADE [Suspect]
     Indication: JUVENILE ARTHRITIS
     Route: 042
  4. METHOTREXATE [Suspect]
     Indication: JUVENILE ARTHRITIS

REACTIONS (11)
  - AUTOANTIBODY POSITIVE [None]
  - BLOOD DISORDER [None]
  - BLOOD IRON DECREASED [None]
  - BLOOD TEST ABNORMAL [None]
  - FULL BLOOD COUNT DECREASED [None]
  - HAEMATURIA [None]
  - LIVER DISORDER [None]
  - RED BLOOD CELL ABNORMALITY [None]
  - RED BLOOD CELL MORPHOLOGY ABNORMAL [None]
  - SPLEEN DISORDER [None]
  - VOMITING [None]
